FAERS Safety Report 9907045 (Version 3)
Quarter: 2014Q2

REPORT INFORMATION
  Report Type: Spontaneous
  Country: US (occurrence: US)
  Receive Date: 20140218
  Receipt Date: 20140417
  Transmission Date: 20141212
  Serious: Yes (Hospitalization, Other)
  Sender: FDA-Public Use
  Company Number: US-UCBSA-112240

PATIENT
  Age: 46 Year
  Sex: Female

DRUGS (8)
  1. CIMZIA [Suspect]
     Indication: CROHN^S DISEASE
     Dosage: UNKNOWN DOSE
     Dates: start: 20100215
  2. CIMZIA [Suspect]
     Indication: CROHN^S DISEASE
  3. CIMZIA [Suspect]
     Indication: CROHN^S DISEASE
     Dosage: MAINTENENCE DOSE
  4. VALIUM [Concomitant]
  5. UCERIS [Concomitant]
     Dosage: 1 TABLET AT 8 AM
  6. DIAZEPAM [Concomitant]
  7. LIALDA DR [Concomitant]
     Dosage: 4 TABS AT AM
  8. AMBIEN [Concomitant]

REACTIONS (4)
  - Cerebrovascular accident [Unknown]
  - Pneumonia [Not Recovered/Not Resolved]
  - Rash generalised [Recovering/Resolving]
  - Fatigue [Unknown]
